FAERS Safety Report 15553294 (Version 1)
Quarter: 2018Q4

REPORT INFORMATION
  Report Type: Spontaneous
  Country: JP (occurrence: JP)
  Receive Date: 20181026
  Receipt Date: 20181026
  Transmission Date: 20190205
  Serious: Yes (Hospitalization)
  Sender: FDA-Public Use
  Company Number: JP-SUN PHARMACEUTICAL INDUSTRIES LTD-2018RR-189343

PATIENT
  Age: 65 Year
  Sex: Female

DRUGS (1)
  1. ACETYLSALICYLIC ACID [Suspect]
     Active Substance: ASPIRIN
     Indication: BACK PAIN
     Dosage: TABLETS, TOTAL AMOUNT, 52.8 G
     Route: 065

REACTIONS (5)
  - Anion gap increased [Unknown]
  - Respiratory alkalosis [Unknown]
  - Acute respiratory distress syndrome [Unknown]
  - Toxicity to various agents [Unknown]
  - Metabolic acidosis [Unknown]
